FAERS Safety Report 16713069 (Version 1)
Quarter: 2019Q3

REPORT INFORMATION
  Report Type: Spontaneous
  Country: FR (occurrence: FR)
  Receive Date: 20190817
  Receipt Date: 20190817
  Transmission Date: 20191004
  Serious: Yes (Life-Threatening)
  Sender: FDA-Public Use
  Company Number: FR-ACCORD-151774

PATIENT
  Age: 48 Year
  Sex: Female

DRUGS (3)
  1. IMOVAN [Suspect]
     Active Substance: ZOPICLONE
     Route: 048
     Dates: start: 20190721
  2. QUETIAPINE. [Suspect]
     Active Substance: QUETIAPINE
     Route: 048
     Dates: start: 20190721
  3. TERCIAN [Suspect]
     Active Substance: CYAMEMAZINE
     Route: 048
     Dates: start: 20190721

REACTIONS (3)
  - Toxicity to various agents [Unknown]
  - Coma [Recovered/Resolved]
  - Bladder dilatation [Recovered/Resolved]

NARRATIVE: CASE EVENT DATE: 20190721
